FAERS Safety Report 12199038 (Version 2)
Quarter: 2016Q2

REPORT INFORMATION
  Report Type: Spontaneous
  Country: US (occurrence: US)
  Receive Date: 20160322
  Receipt Date: 20160421
  Transmission Date: 20160815
  Serious: Yes (Other)
  Sender: FDA-Public Use
  Company Number: US-PERRIGO-16US014248

PATIENT
  Age: 48 Year
  Sex: Female

DRUGS (1)
  1. TIOCONAZOLE. [Suspect]
     Active Substance: TIOCONAZOLE
     Indication: VULVOVAGINAL MYCOTIC INFECTION
     Dosage: 1 PREFILLED APPLICATOR, SINGLE
     Route: 067
     Dates: start: 20160206, end: 20160206

REACTIONS (10)
  - Vulvovaginal burning sensation [Recovered/Resolved]
  - Vulvovaginal erythema [Recovered/Resolved]
  - Vulvovaginal pain [Recovered/Resolved]
  - Vulvovaginal discomfort [Recovered/Resolved]
  - Oedema genital [Recovered/Resolved]
  - Gait disturbance [Recovered/Resolved]
  - Vulvovaginal pruritus [Recovered/Resolved]
  - Urticaria [Recovered/Resolved]
  - Sleep disorder [Recovered/Resolved]
  - Genital blister [Recovered/Resolved]

NARRATIVE: CASE EVENT DATE: 20160207
